FAERS Safety Report 10464228 (Version 2)
Quarter: 2014Q4

REPORT INFORMATION
  Report Type: Spontaneous
  Country: PT (occurrence: PT)
  Receive Date: 20140919
  Receipt Date: 20141009
  Transmission Date: 20150528
  Serious: Yes (Disabling)
  Sender: FDA-Public Use
  Company Number: PT-B.I. PHARMACEUTICALS,INC./RIDGEFIELD-2014-BI-43614PO

PATIENT
  Age: 71 Year
  Sex: Female
  Weight: 77 kg

DRUGS (6)
  1. GINCOBEN [Suspect]
     Active Substance: GINKGO
     Indication: MEMORY IMPAIRMENT
     Dosage: 80 MG
     Route: 048
     Dates: start: 201408
  2. CONCOR [Concomitant]
     Active Substance: BISOPROLOL FUMARATE
     Indication: HYPERTENSION
     Dosage: 5 MG
     Route: 048
  3. PRADAXA [Suspect]
     Active Substance: DABIGATRAN ETEXILATE MESYLATE
     Indication: THROMBOSIS PROPHYLAXIS
     Dosage: 220 MG
     Route: 048
     Dates: start: 201401
  4. CRESTOR [Concomitant]
     Active Substance: ROSUVASTATIN CALCIUM
     Indication: HYPERCHOLESTEROLAEMIA
     Dosage: 10 MG
     Route: 048
  5. RYTMONORM [Suspect]
     Active Substance: PROPAFENONE
     Indication: ARRHYTHMIA
     Dosage: 2 ANZ
     Route: 048
     Dates: start: 201401
  6. FLUDEX LP [Concomitant]
     Indication: HYPERTENSION
     Dosage: 1.5 MG
     Route: 048

REACTIONS (6)
  - Dyspepsia [Recovered/Resolved]
  - Nausea [Recovered/Resolved]
  - Abdominal pain [Recovered/Resolved]
  - Cold sweat [Recovered/Resolved]
  - Activities of daily living impaired [None]
  - Abdominal pain upper [Recovered/Resolved]

NARRATIVE: CASE EVENT DATE: 20140827
